FAERS Safety Report 5247700-1 (Version None)
Quarter: 2007Q1

REPORT INFORMATION
  Report Type: 
  Country: None (occurrence: None)
  Receive Date: 20070222
  Receipt Date: 20070205
  Transmission Date: 20070707
  Serious: Yes (Hospitalization)
  Sender: FDA-Public Use
  Company Number: 2007-00307

PATIENT
  Age: 61 Year
  Sex: Female

DRUGS (1)
  1. VELCADE [Suspect]
     Indication: MULTIPLE MYELOMA
     Dates: start: 20070202, end: 20070202

REACTIONS (7)
  - ASTHENIA [None]
  - BLOOD LACTATE DEHYDROGENASE INCREASED [None]
  - FALL [None]
  - GRIP STRENGTH DECREASED [None]
  - HEADACHE [None]
  - LOSS OF CONSCIOUSNESS [None]
  - PYREXIA [None]
